FAERS Safety Report 17575127 (Version 6)
Quarter: 2020Q3

REPORT INFORMATION
  Report Type: Spontaneous
  Country: US (occurrence: US)
  Receive Date: 20200324
  Receipt Date: 20200710
  Transmission Date: 20201102
  Serious: Yes (Hospitalization, Congenital Anomaly, Other)
  Sender: FDA-Public Use
  Company Number: NVSC2020US081740

PATIENT
  Sex: Female

DRUGS (2)
  1. ZOFRAN ODT [Suspect]
     Active Substance: ONDANSETRON HYDROCHLORIDE
     Indication: FOETAL EXPOSURE DURING PREGNANCY
     Dosage: MOTHER^S DOSE: UNK, QD
     Route: 064
  2. ZOFRAN [Suspect]
     Active Substance: ONDANSETRON HYDROCHLORIDE
     Indication: FOETAL EXPOSURE DURING PREGNANCY
     Dosage: 30 UNK
     Route: 064

REACTIONS (55)
  - Ventricular septal defect [Unknown]
  - Pharyngitis streptococcal [Unknown]
  - Atelectasis [Unknown]
  - Fall [Unknown]
  - Ventricular hypertrophy [Unknown]
  - Right atrial enlargement [Unknown]
  - Arthralgia [Unknown]
  - Upper respiratory tract infection [Unknown]
  - Respiratory syncytial virus test positive [Unknown]
  - Diarrhoea [Unknown]
  - Aortic valve incompetence [Unknown]
  - Bronchiolitis [Unknown]
  - Anhedonia [Unknown]
  - Hyperhidrosis [Unknown]
  - Head injury [Unknown]
  - Sinus tachycardia [Unknown]
  - Contusion [Unknown]
  - Dyspnoea [Unknown]
  - Wheezing [Unknown]
  - Pyrexia [Unknown]
  - Deformity [Unknown]
  - Foetal exposure during pregnancy [Unknown]
  - Injury [Not Recovered/Not Resolved]
  - Chest pain [Unknown]
  - Keloid scar [Unknown]
  - Viral rash [Unknown]
  - Heart disease congenital [Unknown]
  - Emotional distress [Unknown]
  - Bronchitis [Unknown]
  - Atrial septal defect [Unknown]
  - Left-to-right cardiac shunt [Unknown]
  - Right ventricular false tendon [Unknown]
  - Cardiomegaly [Unknown]
  - Constipation [Unknown]
  - Vomiting [Unknown]
  - Left ventricle outflow tract obstruction [Unknown]
  - Craniocerebral injury [Unknown]
  - Oral candidiasis [Unknown]
  - Ligament sprain [Unknown]
  - Rectal fissure [Unknown]
  - Decreased appetite [Unknown]
  - Pulmonary congestion [Unknown]
  - Pulmonary artery dilatation [Unknown]
  - Tricuspid valve incompetence [Unknown]
  - Haematochezia [Unknown]
  - Left atrial dilatation [Unknown]
  - Cardiac murmur [Unknown]
  - Nasal injury [Unknown]
  - Cough [Unknown]
  - Dehydration [Unknown]
  - Bronchitis bacterial [Unknown]
  - Pain [Unknown]
  - Pain in extremity [Unknown]
  - Dizziness [Unknown]
  - Epistaxis [Recovered/Resolved]
